FAERS Safety Report 5983106-5 (Version None)
Quarter: 2008Q4

REPORT INFORMATION
  Report Type: 
  Country: None (occurrence: None)
  Receive Date: 20081208
  Receipt Date: 20081127
  Transmission Date: 20090506
  Serious: Yes (Disabling)
  Sender: FDA-Public Use
  Company Number: GB-TEVA-181451ISR

PATIENT
  Age: 42 Year
  Sex: Female

DRUGS (3)
  1. CISPLATIN [Suspect]
     Indication: ANAL CANCER
     Route: 042
     Dates: end: 20071101
  2. FLUOROURACIL [Suspect]
     Indication: ANAL CANCER
     Route: 042
     Dates: end: 20071101
  3. MITOMYCIN [Suspect]
     Dates: end: 20071101

REACTIONS (1)
  - ARTHRALGIA [None]
